FAERS Safety Report 16371978 (Version 1)
Quarter: 2019Q3

REPORT INFORMATION
  Report Type: Spontaneous
  Country: US (occurrence: US)
  Receive Date: 20190529
  Receipt Date: 20190529
  Transmission Date: 20191004
  Serious: No
  Sender: FDA-Public Use
  Company Number: None

PATIENT
  Age: 31 Year
  Sex: Female
  Weight: 90 kg

DRUGS (2)
  1. ZUBSOLV (LIKE SUBOXONE) 5.7MG 1/2 PILL DAILY [Concomitant]
  2. OXYMETAZOLINE HCL 0.05% [Suspect]
     Active Substance: OXYMETAZOLINE HYDROCHLORIDE
     Indication: SINUS CONGESTION
     Dosage: ?          QUANTITY:1 SPRAY(S);?
     Route: 055
     Dates: start: 20190529, end: 20190529

REACTIONS (4)
  - Rhinalgia [None]
  - Nasal discomfort [None]
  - Palpitations [None]
  - Nightmare [None]

NARRATIVE: CASE EVENT DATE: 20190529
